FAERS Safety Report 16656125 (Version 1)
Quarter: 2019Q3

REPORT INFORMATION
  Report Type: Spontaneous
  Country: DE (occurrence: DE)
  Receive Date: 20190801
  Receipt Date: 20190801
  Transmission Date: 20191004
  Serious: Yes (Other)
  Sender: FDA-Public Use
  Company Number: DE-PFIZER INC-2019329870

PATIENT
  Age: 34 Year
  Sex: Male

DRUGS (8)
  1. AMLODIPINE [Concomitant]
     Active Substance: AMLODIPINE BESYLATE
     Dosage: 10 MG, UNK
     Route: 048
  2. CLOZAPIN [Concomitant]
     Active Substance: CLOZAPINE
     Dosage: 25 MG, 2X/DAY, (REDUCED)
     Route: 048
     Dates: start: 2007
  3. METOPROLOL. [Concomitant]
     Active Substance: METOPROLOL
     Dosage: 95 MG, 1X1
     Route: 048
  4. VENLAFAXINE HCL [Suspect]
     Active Substance: VENLAFAXINE HYDROCHLORIDE
     Dosage: 150 MG, 1X/DAY
     Route: 048
     Dates: start: 2007
  5. TORASEMID [Concomitant]
     Active Substance: TORSEMIDE
     Dosage: 10 MG, 1X/DAY
     Route: 048
     Dates: start: 2011
  6. RISPERIDON [Concomitant]
     Active Substance: RISPERIDONE
     Dosage: 9 MG, DAILY, 3X1 (ONGOING)
     Route: 048
     Dates: start: 2011
  7. PANTOPRAZOL [PANTOPRAZOLE] [Concomitant]
     Active Substance: PANTOPRAZOLE
     Dosage: 40 MG, UNK, 1X1
     Route: 048
  8. LORAZEPAM. [Concomitant]
     Active Substance: LORAZEPAM
     Dosage: 1 MG, 1X/DAY
     Route: 048
     Dates: start: 2007

REACTIONS (1)
  - Lupus nephritis [Unknown]

NARRATIVE: CASE EVENT DATE: 201905
